FAERS Safety Report 7314849-9 (Version None)
Quarter: 2011Q1

REPORT INFORMATION
  Report Type: 
  Country: None (occurrence: None)
  Receive Date: 20110225
  Receipt Date: 20100125
  Transmission Date: 20110831
  Serious: No
  Sender: FDA-Public Use
  Company Number: US-MYLANLABS-2010S1000246

PATIENT
  Age: 14 Year
  Sex: Female

DRUGS (2)
  1. AMNESTEEM [Suspect]
  2. ORAL CONTRACEPTIVE NOS [Suspect]
     Indication: CONTRACEPTION
     Route: 048

REACTIONS (1)
  - HEPATIC ENZYME INCREASED [None]
